FAERS Safety Report 4927128-1 (Version None)
Quarter: 2006Q1

REPORT INFORMATION
  Report Type: 
  Country: None (occurrence: None)
  Receive Date: 20060222
  Receipt Date: 20060206
  Transmission Date: 20060701
  Serious: Yes (Death, Hospitalization)
  Sender: FDA-Public Use
  Company Number: COT_0395_2006

PATIENT
  Age: 61 Year
  Sex: Female
  Weight: 116.1208 kg

DRUGS (18)
  1. VENTAVIS [Suspect]
     Indication: PULMONARY HYPERTENSION
     Dosage: 5 MCG 6XD IH
     Route: 055
     Dates: start: 20050510
  2. TRACLEER [Concomitant]
  3. VICODIN ES [Concomitant]
  4. ALBUTEROL [Concomitant]
  5. PATANOL [Concomitant]
  6. RESTORIL [Concomitant]
  7. CARDIZEM [Concomitant]
  8. XANAX [Concomitant]
  9. PHENERGAN [Concomitant]
  10. LIPITOR [Concomitant]
  11. PREVACID [Concomitant]
  12. AMARYL [Concomitant]
  13. DEMADEX [Concomitant]
  14. PAXIL [Concomitant]
  15. POTASSIUM CHLORIDE [Concomitant]
  16. ALTACE [Concomitant]
  17. ASPIRIN [Concomitant]
  18. OXYGEN [Concomitant]

REACTIONS (9)
  - ANKLE FRACTURE [None]
  - BLOOD PRESSURE DECREASED [None]
  - CARDIAC FAILURE CONGESTIVE [None]
  - CATHETER RELATED INFECTION [None]
  - CONDITION AGGRAVATED [None]
  - FLUID RETENTION [None]
  - PULMONARY HYPERTENSION [None]
  - SEPSIS [None]
  - URINE OUTPUT DECREASED [None]
